FAERS Safety Report 11785443 (Version 2)
Quarter: 2015Q4

REPORT INFORMATION
  Report Type: Spontaneous
  Country: CZ (occurrence: CZ)
  Receive Date: 20151130
  Receipt Date: 20151221
  Transmission Date: 20160305
  Serious: Yes (Other)
  Sender: FDA-Public Use
  Company Number: CZ-TEVA-611786ISR

PATIENT
  Age: 54 Year
  Sex: Female

DRUGS (3)
  1. OXALIPLATIN. [Suspect]
     Active Substance: OXALIPLATIN
     Dates: end: 201402
  2. FOLINIC ACID [Suspect]
     Active Substance: LEUCOVORIN
     Dates: end: 201402
  3. IRINOTECAN [Suspect]
     Active Substance: IRINOTECAN
     Dates: end: 201402

REACTIONS (2)
  - Hepatic steatosis [Unknown]
  - Disease progression [Recovered/Resolved]

NARRATIVE: CASE EVENT DATE: 2014
